FAERS Safety Report 5217057-0 (Version None)
Quarter: 2007Q1

REPORT INFORMATION
  Report Type: 
  Country: None (occurrence: None)
  Receive Date: 20070124
  Receipt Date: 20070116
  Transmission Date: 20070707
  Serious: Yes (Death)
  Sender: FDA-Public Use
  Company Number: US-ROCHE-478630

PATIENT

DRUGS (4)
  1. CAPECITABINE [Suspect]
     Indication: DRUG USE FOR UNKNOWN INDICATION
     Route: 065
  2. AVASTIN [Suspect]
     Indication: COLORECTAL CANCER
     Route: 065
  3. OXALIPLATIN [Suspect]
     Indication: DRUG USE FOR UNKNOWN INDICATION
     Route: 065
  4. ZOCOR [Concomitant]

REACTIONS (1)
  - LARGE INTESTINE PERFORATION [None]
